FAERS Safety Report 15584263 (Version 3)
Quarter: 2018Q4

REPORT INFORMATION
  Report Type: Spontaneous
  Country: JP (occurrence: JP)
  Receive Date: 20181104
  Receipt Date: 20181104
  Transmission Date: 20190205
  Serious: Yes (Death, Life-Threatening, Hospitalization, Other)
  Sender: FDA-Public Use
  Company Number: PHHY2018JP143747

PATIENT
  Age: 69 Year
  Sex: Male

DRUGS (3)
  1. METHYLPREDNISOLONE. [Suspect]
     Active Substance: METHYLPREDNISOLONE
     Indication: INTERSTITIAL LUNG DISEASE
     Dosage: HIGH-DOSE
     Route: 042
     Dates: start: 201608
  2. PREDNISOLONE. [Suspect]
     Active Substance: PREDNISOLONE
     Indication: INTERSTITIAL LUNG DISEASE
     Dosage: 60 MG, QD
     Route: 048
     Dates: start: 201608
  3. PREDNISOLONE. [Suspect]
     Active Substance: PREDNISOLONE
     Dosage: 40 MG, QD
     Route: 048
     Dates: start: 2016

REACTIONS (9)
  - Herpes zoster meningoencephalitis [Fatal]
  - Altered state of consciousness [Fatal]
  - Rash vesicular [Fatal]
  - Pneumonia aspiration [Fatal]
  - Pain [Fatal]
  - Seizure [Fatal]
  - Respiratory failure [Fatal]
  - Rash erythematous [Fatal]
  - Varicella zoster virus infection [Fatal]

NARRATIVE: CASE EVENT DATE: 2016
